FAERS Safety Report 6921773-X (Version None)
Quarter: 2010Q3

REPORT INFORMATION
  Report Type: 
  Country: None (occurrence: None)
  Receive Date: 20100806
  Receipt Date: 20100413
  Transmission Date: 20110219
  Serious: No
  Sender: FDA-Public Use
  Company Number: 2010-04165

PATIENT
  Age: 49 Year
  Sex: Male

DRUGS (5)
  1. RAPAFLO [Suspect]
     Indication: BENIGN PROSTATIC HYPERPLASIA
     Dosage: 8 MG, DAILY, ORAL
     Route: 048
     Dates: start: 20100304, end: 20100313
  2. RAPAFLO [Suspect]
     Indication: BLADDER OBSTRUCTION
     Dosage: 8 MG, DAILY, ORAL
     Route: 048
     Dates: start: 20100304, end: 20100313
  3. CIPRO [Concomitant]
  4. BACTRIM [Concomitant]
  5. LIPITOR [Concomitant]

REACTIONS (5)
  - CONDITION AGGRAVATED [None]
  - DRUG INEFFECTIVE [None]
  - PELVIC PAIN [None]
  - SUPRAPUBIC PAIN [None]
  - URINARY RETENTION [None]
